FAERS Safety Report 9391735 (Version 5)
Quarter: 2015Q1

REPORT INFORMATION
  Report Type: Spontaneous
  Country: JP (occurrence: JP)
  Receive Date: 20130709
  Receipt Date: 20150220
  Transmission Date: 20150721
  Serious: Yes (Life-Threatening, Hospitalization, Other)
  Sender: FDA-Public Use
  Company Number: JP-GLAXOSMITHKLINE-B0905662A

PATIENT
  Age: 39 Year
  Sex: Male

DRUGS (9)
  1. LIMAS [Suspect]
     Active Substance: LITHIUM CARBONATE
     Dosage: 1000 MG, 1D
     Route: 048
  2. LAMOTRIGINE. [Suspect]
     Active Substance: LAMOTRIGINE
     Indication: BIPOLAR I DISORDER
     Dosage: 25 MG, QOD
     Route: 048
     Dates: start: 20130508, end: 20130521
  3. VALERIN [Concomitant]
     Active Substance: VALPROATE SODIUM
     Dates: start: 20130522, end: 20130604
  4. VALERIN [Concomitant]
     Active Substance: VALPROATE SODIUM
     Dosage: 200 MG, BID
     Dates: start: 20130605
  5. VALERIN [Concomitant]
     Active Substance: VALPROATE SODIUM
     Dosage: 400 MG, BID
     Dates: start: 201211, end: 20130521
  6. VALERIN [Concomitant]
     Active Substance: VALPROATE SODIUM
     Dosage: 200 MG, BID
     Dates: start: 201210, end: 201210
  7. LAMOTRIGINE. [Suspect]
     Active Substance: LAMOTRIGINE
     Dosage: 25 MG, BID
     Route: 048
     Dates: start: 20130605, end: 20130618
  8. LAMOTRIGINE. [Suspect]
     Active Substance: LAMOTRIGINE
     Dosage: 25 MG, QD
     Route: 048
     Dates: start: 20130522, end: 20130604
  9. LIMAS [Suspect]
     Active Substance: LITHIUM CARBONATE
     Indication: BIPOLAR DISORDER
     Dosage: UNK
     Route: 048
     Dates: start: 20130327

REACTIONS (2)
  - Stevens-Johnson syndrome [Recovering/Resolving]
  - Drug reaction with eosinophilia and systemic symptoms [Unknown]

NARRATIVE: CASE EVENT DATE: 20130608
